FAERS Safety Report 14703871 (Version 4)
Quarter: 2018Q2

REPORT INFORMATION
  Report Type: Spontaneous
  Country: US (occurrence: US)
  Receive Date: 20180402
  Receipt Date: 20180525
  Transmission Date: 20180711
  Serious: Yes (Hospitalization)
  Sender: FDA-Public Use
  Company Number: US-PFIZER INC-2018130062

PATIENT
  Age: 67 Year
  Sex: Female

DRUGS (36)
  1. LANTUS [Concomitant]
     Active Substance: INSULIN GLARGINE
     Indication: TYPE 2 DIABETES MELLITUS
     Dosage: 60 IU, DAILY(60 UNITS SUBCUTANEOUS EVERY, MORNING)
     Route: 058
     Dates: start: 201308
  2. VITAMIN D3 [Concomitant]
     Active Substance: CHOLECALCIFEROL
     Indication: GINGIVAL DISORDER
     Dosage: UNK
     Dates: start: 20171125
  3. LUTEIN [Concomitant]
     Active Substance: LUTEIN
     Dosage: 10 MG, UNK
  4. CLONIDINE HCL [Concomitant]
     Active Substance: CLONIDINE HYDROCHLORIDE
     Indication: HYPERTENSION
     Dosage: 0.1 MG, 1X/DAY(ONCE DAILY IN MOR BY MOUTH )
     Route: 048
     Dates: start: 201408
  5. IMURAN [Concomitant]
     Active Substance: AZATHIOPRINE
     Indication: MYASTHENIA GRAVIS
     Dosage: 50 MG, 3X/DAY
     Route: 048
     Dates: start: 201406
  6. ICAPS PLUS [Concomitant]
     Dosage: UNK UNK, DAILY (1 TABLET, ORALLY, DAILY)
     Route: 048
  7. ATORVASTATIN CALCIUM. [Suspect]
     Active Substance: ATORVASTATIN CALCIUM
     Indication: BLOOD CHOLESTEROL INCREASED
     Dosage: 10 MG, ONCE A DAY (IN THE EVENING)
     Dates: start: 201712
  8. ATORVASTATIN CALCIUM. [Suspect]
     Active Substance: ATORVASTATIN CALCIUM
     Indication: LOW DENSITY LIPOPROTEIN INCREASED
     Dosage: 10 MG, 1X/DAY(1 TABLET WAS TAKEN PM ONCE DAILY)
     Dates: start: 20171129, end: 20180402
  9. NOVOLOG [Concomitant]
     Active Substance: INSULIN ASPART
     Dosage: 75 IU, DAILY (18 UNITS WITH BREAKFAST, 22 UNITS WITH LUNCH, AND 22 UNITS WITH DINNER UP TO TOTAL 75)
     Route: 058
  10. LUBRIDERM DAILY MOISTURIZER [Concomitant]
     Indication: SKIN DISORDER
     Dosage: UNK , AS NEEDED(1-2 TIMES DAILY )
     Route: 061
     Dates: start: 1969
  11. PYRIDOSTIGMINE BROMIDE. [Concomitant]
     Active Substance: PYRIDOSTIGMINE BROMIDE
     Indication: MYASTHENIA GRAVIS
     Dosage: 60 MG, 4X/DAY
     Route: 048
     Dates: start: 201308
  12. PREDNISONE. [Concomitant]
     Active Substance: PREDNISONE
     Indication: MYASTHENIA GRAVIS
     Dosage: 7.5 MG, 1X/DAY (PRE BREAKFAST)
     Route: 048
     Dates: start: 201407
  13. ARTIFICIAL TEARS [Concomitant]
     Active Substance: GLYCERIN\HYPROMELLOSES\POLYETHYLENE GLYCOL 400
     Indication: DRY EYE
     Dosage: UNK , AS NEEDED (1-2 DROP EACH EYES)
     Dates: start: 20160323
  14. CENTRUM [Concomitant]
     Active Substance: VITAMINS
     Dosage: UNK UNK, DAILY(1 TABLET, ORALLY, DAILY)
     Route: 048
  15. ACETAMINOPHEN. [Concomitant]
     Active Substance: ACETAMINOPHEN
     Indication: PAIN
     Dosage: 500 MG, AS NEEDED (500 MG, ORALLY, ONCE, PRN AS NEEDED )
     Route: 048
  16. NOVOLOG [Concomitant]
     Active Substance: INSULIN ASPART
     Indication: TYPE 2 DIABETES MELLITUS
     Dosage: 18 IU, AS NEEDED
     Dates: start: 201308
  17. INSULIN GLARGINE [Concomitant]
     Active Substance: INSULIN GLARGINE
     Indication: TYPE 2 DIABETES MELLITUS
     Dosage: 60 IU, 1X/DAY(DAILY PRE BREAKFAST ONLY)
     Dates: start: 201308
  18. INSULIN ASPART [Concomitant]
     Active Substance: INSULIN ASPART
     Dosage: 46 IU, DAILY (PRE-LUNCH 22 UNITS, PRE-DINNER 24 UNITS)
  19. ALBUMIN HUMAN [Concomitant]
     Active Substance: ALBUMIN HUMAN
     Dosage: 3250 UNK, UNK(3,250 ML, IVPB, INFUSION, ONCE)
     Route: 042
  20. ZEAXANTHIN [Concomitant]
     Active Substance: ZEAXANTHIN
     Dosage: 2 MG, UNK
  21. OMEGA 3 [Concomitant]
     Active Substance: OMEGA-3 FATTY ACIDS
     Dosage: 500 MG, DAILY(500 MG, = 1 CAPSULE, ORALLY, DAILY)
     Route: 048
  22. POTASSIUM CHLORIDE. [Concomitant]
     Active Substance: POTASSIUM CHLORIDE
     Indication: BLOOD POTASSIUM DECREASED
     Dosage: 20 ML, 1X/DAY(1 TBS DAILY AM)
     Dates: start: 201407
  23. CENTRUM FOR WOMEN [Concomitant]
     Active Substance: VITAMINS
     Indication: IMMUNE ENHANCEMENT THERAPY
     Dosage: UNK
     Dates: start: 201308
  24. PREDNISONE. [Concomitant]
     Active Substance: PREDNISONE
     Dosage: 7.5 MG, DAILY (7.5 MG, = 1.5 TABLET, ORALLY, DAILY)
     Route: 048
  25. ALBUMIN HUMAN [Concomitant]
     Active Substance: ALBUMIN HUMAN
     Indication: PLASMAPHERESIS
     Dosage: UNK(IV, ONCE, MAINTENANCE)
  26. OMEGA 3 [Concomitant]
     Active Substance: OMEGA-3 FATTY ACIDS
     Dosage: 280 MG, UNK
  27. POTASSIUM CHLORIDE. [Concomitant]
     Active Substance: POTASSIUM CHLORIDE
     Dosage: 20 ML, DAILY(20 ML ORALLY DAILY,X30 DAYS )
     Route: 048
  28. TRIAMTERENE AND HYDROCHLOROTHIAZID [Concomitant]
     Active Substance: HYDROCHLOROTHIAZIDE\TRIAMTERENE
     Indication: HYPERTENSION
     Dosage: UNK, 1X/DAY[HYDROCHLOROTHIAZIDE 37.5 MG, TRIAMTERENE 25MG](TAKING ONE HALF TABLET DAILY PM WITH DI))
  29. VITAMIN D3 [Concomitant]
     Active Substance: CHOLECALCIFEROL
     Indication: MUSCLE DISORDER
  30. VITAMIN D3 [Concomitant]
     Active Substance: CHOLECALCIFEROL
     Indication: IMMUNE SYSTEM DISORDER
  31. LUBRIDERM DAILY MOISTURIZER [Concomitant]
     Dosage: UNK, 2X/DAY(1 APP, TOPICAL, BID)
     Route: 061
  32. ACETAMINOPHEN. [Concomitant]
     Active Substance: ACETAMINOPHEN
     Indication: PYREXIA
     Dosage: 650 MG, AS NEEDED
     Dates: start: 20150215
  33. TRIAMTERENE AND HYDROCHLOROTHIAZID [Concomitant]
     Active Substance: HYDROCHLOROTHIAZIDE\TRIAMTERENE
     Dosage: 0.5 MG, DAILY[HYDROCHLOROTHIAZIDE 37.5 MG, TRIAMTERENE 25MG]
     Route: 048
  34. HEPARIN [Concomitant]
     Active Substance: HEPARIN SODIUM
     Dosage: 1.7 IU, UNK(1,700 UNITS, IV DWELL, ONCE 0 ML/HR, INFUSE OVER 0 HOURS)
     Route: 042
  35. HEPARIN [Concomitant]
     Active Substance: HEPARIN SODIUM
     Dosage: 1.8 IU, UNK(1,800 UNITS, IV DWELL, ONCE0 ML/HR, INFUSE OVER 0 HOURS)
  36. CALCIUM GLUCONATE. [Concomitant]
     Active Substance: CALCIUM GLUCONATE
     Indication: PLASMAPHERESIS
     Dosage: UNK(3 GM, IVPB, ONCE 70 ML/HR, INFUSE OVER 1.5 HOURS, TOTAL VOLUME (ML) =  105)
     Route: 042

REACTIONS (4)
  - Erythema [Recovering/Resolving]
  - Pruritus [Recovering/Resolving]
  - Glycosylated haemoglobin increased [Unknown]
  - Rash [Recovered/Resolved]

NARRATIVE: CASE EVENT DATE: 20180215
